FAERS Safety Report 5760300-X (Version None)
Quarter: 2008Q2

REPORT INFORMATION
  Report Type: 
  Country: None (occurrence: None)
  Receive Date: 20080605
  Receipt Date: 20080528
  Transmission Date: 20081010
  Serious: Yes (Other)
  Sender: FDA-Public Use
  Company Number: US-PFIZER INC-2008045992

PATIENT
  Sex: Male
  Weight: 81.818 kg

DRUGS (2)
  1. DETROL LA [Suspect]
     Indication: BURNING SENSATION
     Route: 048
  2. DETROL LA [Suspect]
     Indication: PAIN

REACTIONS (1)
  - BLOOD PRESSURE INCREASED [None]
